FAERS Safety Report 7231329-X (Version None)
Quarter: 2011Q1

REPORT INFORMATION
  Report Type: 
  Country: None (occurrence: None)
  Receive Date: 20110118
  Receipt Date: 20101022
  Transmission Date: 20110831
  Serious: Yes (Other)
  Sender: FDA-Public Use
  Company Number: PHHY2010SI64489

PATIENT
  Sex: Female

DRUGS (4)
  1. GLEEVEC [Suspect]
     Dosage: 400 MG DAILY
     Route: 048
     Dates: end: 20100830
  2. GLEEVEC [Suspect]
     Indication: CHRONIC MYELOID LEUKAEMIA
     Dosage: 400 MG DAILY
     Route: 048
     Dates: start: 20050101
  3. GLEEVEC [Suspect]
     Dosage: 600 MG DAILY
     Route: 048
  4. GLEEVEC [Suspect]
     Dosage: 400 MG DAILY
     Route: 048
     Dates: start: 20100201, end: 20100201

REACTIONS (4)
  - MENSTRUATION IRREGULAR [None]
  - DRUG LEVEL INCREASED [None]
  - DRUG EXPOSURE DURING PREGNANCY [None]
  - OVARIAN ATROPHY [None]
